FAERS Safety Report 5267744-3 (Version None)
Quarter: 2007Q1

REPORT INFORMATION
  Report Type: 
  Country: None (occurrence: None)
  Receive Date: 20070316
  Receipt Date: 20070305
  Transmission Date: 20070707
  Serious: Yes (Other)
  Sender: FDA-Public Use
  Company Number: CA-PFIZER INC-2007015578

PATIENT
  Sex: Female

DRUGS (2)
  1. SUTENT [Suspect]
     Route: 048
  2. HEPARIN [Concomitant]

REACTIONS (4)
  - ASTHENIA [None]
  - FATIGUE [None]
  - HAEMATURIA [None]
  - KIDNEY INFECTION [None]
